FAERS Safety Report 6902701-X (Version None)
Quarter: 2010Q3

REPORT INFORMATION
  Report Type: 
  Country: None (occurrence: None)
  Receive Date: 20100803
  Receipt Date: 20080906
  Transmission Date: 20110219
  Serious: Yes (Other)
  Sender: FDA-Public Use
  Company Number: US-PFIZER INC-2008075806

PATIENT
  Sex: Female
  Weight: 53.5 kg

DRUGS (3)
  1. LYRICA [Suspect]
     Indication: POST HERPETIC NEURALGIA
     Route: 048
  2. TYLENOL [Concomitant]
  3. IBUPROFEN [Concomitant]

REACTIONS (3)
  - FALL [None]
  - HIP FRACTURE [None]
  - PARAESTHESIA [None]
